FAERS Safety Report 10780841 (Version 1)
Quarter: 2015Q1

REPORT INFORMATION
  Report Type: Spontaneous
  Country: US (occurrence: None)
  Receive Date: 20150206
  Receipt Date: 20150206
  Transmission Date: 20150721
  Serious: Yes (Hospitalization)
  Sender: FDA-Public Use
  Company Number: None

PATIENT
  Age: 80 Year
  Sex: Female
  Weight: 79.7 kg

DRUGS (2)
  1. BEVACIZUMAB [Suspect]
     Active Substance: BEVACIZUMAB
     Indication: COLON CANCER
     Route: 042
     Dates: start: 20121003, end: 20140923
  2. DABIGATRAN [Suspect]
     Active Substance: DABIGATRAN
     Indication: ATRIAL FIBRILLATION
     Route: 048
     Dates: start: 20120919, end: 20140929

REACTIONS (7)
  - Dysphagia [None]
  - Colitis [None]
  - Drug interaction [None]
  - Diarrhoea [None]
  - Gastric haemorrhage [None]
  - Haematochezia [None]
  - Odynophagia [None]

NARRATIVE: CASE EVENT DATE: 20140929
